FAERS Safety Report 11218670 (Version 2)
Quarter: 2015Q2

REPORT INFORMATION
  Report Type: Spontaneous
  Country: JP (occurrence: JP)
  Receive Date: 20150625
  Receipt Date: 20150629
  Transmission Date: 20150821
  Serious: Yes (Death)
  Sender: FDA-Public Use
  Company Number: PHHY2015JP076407

PATIENT
  Sex: Female

DRUGS (2)
  1. RIVASTACH [Suspect]
     Active Substance: RIVASTIGMINE
     Indication: DEMENTIA ALZHEIMER^S TYPE
     Dosage: 1.9 MG, QD (4.5 MG RIVASTIGMINE BASE)
     Route: 062
     Dates: start: 2013, end: 2013
  2. RIVASTACH [Suspect]
     Active Substance: RIVASTIGMINE
     Dosage: 4.6 MG, QD (9 MG RIVASTIGMINE BASE)
     Route: 062
     Dates: start: 2013

REACTIONS (6)
  - Nasopharyngitis [Fatal]
  - Application site erythema [Unknown]
  - Death [Fatal]
  - Blood cholinesterase decreased [Fatal]
  - Intestinal obstruction [Fatal]
  - Grunting [Unknown]

NARRATIVE: CASE EVENT DATE: 2013
